FAERS Safety Report 9379652 (Version 2)
Quarter: 2013Q3

REPORT INFORMATION
  Report Type: Spontaneous
  Country: DK (occurrence: None)
  Receive Date: 20130627
  Receipt Date: 20130722
  Transmission Date: 20140515
  Serious: Yes (Hospitalization)
  Sender: FDA-Public Use
  Company Number: 1684281

PATIENT
  Age: 68 Year
  Sex: Female

DRUGS (7)
  1. EPIRUBICIN HYDROCHLORIDE [Suspect]
     Indication: BREAST CANCER
     Route: 042
     Dates: start: 20121218
  2. DOCETAXEL [Suspect]
     Indication: BREAST CANCER
     Route: 042
     Dates: start: 20130220
  3. FLUOROURACIL [Suspect]
     Indication: BREAST CANCER
     Route: 042
     Dates: start: 20121218
  4. (CYCLOPHOSPHAMIDE) [Suspect]
     Indication: BREAST CANCER
     Route: 042
     Dates: start: 20121218
  5. PEGFILGRASTIM [Suspect]
     Indication: PRODUCT USED FOR UNKNOWN INDICATION
  6. (PERTUZUMAB) [Concomitant]
  7. (TRASTUZUMAB) [Concomitant]

REACTIONS (6)
  - Musculoskeletal pain [None]
  - Mastitis [None]
  - Skin infection [None]
  - Pain in extremity [None]
  - Hypomagnesaemia [None]
  - Seroma [None]
